FAERS Safety Report 9072906 (Version 1)
Quarter: 2013Q1

REPORT INFORMATION
  Report Type: Report from Study
  Country: US (occurrence: US)
  Receive Date: 20130129
  Receipt Date: 20130129
  Transmission Date: 20140127
  Serious: No
  Sender: FDA-Public Use
  Company Number: US-ABBOTT-12P-163-0932306-00

PATIENT
  Age: 53 Year
  Sex: Female

DRUGS (4)
  1. HUMIRA 40 MG/0.8 ML PEN [Suspect]
     Indication: ANKYLOSING SPONDYLITIS
     Dates: start: 20120503
  2. PRILOSEC [Concomitant]
     Indication: GASTROOESOPHAGEAL REFLUX DISEASE
     Dosage: OTC DAILY
  3. PRED FORTE [Concomitant]
     Indication: UVEITIS
     Dosage: 1 DROP IN LEFT EYE EVERY OTHER DAY
     Route: 047
  4. PRED FORTE [Concomitant]
     Dosage: 2 DROPS IN RIGHT EYE EVERY DAY
     Route: 047

REACTIONS (1)
  - Injection site haemorrhage [Recovered/Resolved]
